FAERS Safety Report 8608652-7 (Version None)
Quarter: 2012Q3

REPORT INFORMATION
  Report Type: 
  Country: None (occurrence: None)
  Receive Date: 20120821
  Receipt Date: 20120817
  Transmission Date: 20120928
  Serious: Yes (Death, Other)
  Sender: FDA-Public Use
  Company Number: JP-ASTRAZENECA-2012SE38005

PATIENT
  Age: 84 Year
  Sex: Female
  Weight: 55 kg

DRUGS (4)
  1. MAGLAX [Concomitant]
     Indication: CONSTIPATION
     Route: 048
  2. FASLODEX [Suspect]
     Indication: BREAST CANCER RECURRENT
     Route: 030
     Dates: start: 20120512, end: 20120512
  3. LORFENAMIN [Concomitant]
     Indication: BACK PAIN
     Route: 048
  4. SELBEX [Concomitant]
     Indication: BACK PAIN
     Route: 048

REACTIONS (5)
  - BREAST SWELLING [None]
  - ASTHENIA [None]
  - NEOPLASM MALIGNANT [None]
  - METASTASES TO SPINE [None]
  - MUSCULOSKELETAL PAIN [None]
